FAERS Safety Report 5315924-0 (Version None)
Quarter: 2007Q1

REPORT INFORMATION
  Report Type: 
  Country: None (occurrence: None)
  Receive Date: 20070130
  Receipt Date: 20061108
  Transmission Date: 20070707
  Serious: No
  Sender: FDA-Public Use
  Company Number: 200619210US

PATIENT

DRUGS (1)
  1. KETEK [Suspect]

REACTIONS (1)
  - HEPATIC ENZYME INCREASED [None]
